FAERS Safety Report 19051171 (Version 1)
Quarter: 2021Q1

REPORT INFORMATION
  Report Type: Spontaneous
  Country: US (occurrence: US)
  Receive Date: 20210323
  Receipt Date: 20210323
  Transmission Date: 20210420
  Serious: No
  Sender: FDA-Public Use
  Company Number: NVSC2021US066529

PATIENT
  Sex: Male
  Weight: 44 kg

DRUGS (1)
  1. ILARIS [Suspect]
     Active Substance: CANAKINUMAB
     Indication: PYREXIA
     Dosage: 88 MG, 4W
     Route: 065
     Dates: start: 201911, end: 20210317

REACTIONS (1)
  - Incorrect dose administered [Unknown]
